FAERS Safety Report 13963427 (Version 1)
Quarter: 2017Q3

REPORT INFORMATION
  Report Type: Spontaneous
  Country: US (occurrence: US)
  Receive Date: 20170913
  Receipt Date: 20170913
  Transmission Date: 20171128
  Serious: Yes (Hospitalization, Other)
  Sender: FDA-Public Use
  Company Number: None

PATIENT
  Age: 63 Year
  Sex: Male
  Weight: 115.65 kg

DRUGS (1)
  1. VANCOMYCIN [Suspect]
     Active Substance: VANCOMYCIN
     Route: 041
     Dates: start: 20170911, end: 20170911

REACTIONS (10)
  - Hyperhidrosis [None]
  - Presyncope [None]
  - Bradycardia [None]
  - Hypotension [None]
  - Depressed level of consciousness [None]
  - Infusion related reaction [None]
  - Confusional state [None]
  - Feeling abnormal [None]
  - Erythema [None]
  - Anaphylactic reaction [None]

NARRATIVE: CASE EVENT DATE: 20170911
